FAERS Safety Report 9613480 (Version 1)
Quarter: 2013Q4

REPORT INFORMATION
  Report Type: Report from Study
  Country: VE (occurrence: VE)
  Receive Date: 20131010
  Receipt Date: 20131010
  Transmission Date: 20140711
  Serious: Yes (Hospitalization)
  Sender: FDA-Public Use
  Company Number: VE-ROCHE-1286981

PATIENT
  Sex: Female
  Weight: 61 kg

DRUGS (2)
  1. PEG-INTERFERON ALFA 2A [Suspect]
     Indication: HEPATITIS C
     Route: 058
     Dates: start: 20130919, end: 20131002
  2. RIBAVIRIN [Suspect]
     Indication: HEPATITIS C
     Route: 048
     Dates: start: 20130919

REACTIONS (5)
  - Choluria [Unknown]
  - Epistaxis [Unknown]
  - Gingival bleeding [Unknown]
  - Diarrhoea [Unknown]
  - Vomiting [Unknown]
